FAERS Safety Report 5056478-6 (Version None)
Quarter: 2006Q2

REPORT INFORMATION
  Report Type: 
  Country: None (occurrence: None)
  Receive Date: 20060616
  Receipt Date: 20060323
  Transmission Date: 20061013
  Serious: Yes (Hospitalization, Other)
  Sender: FDA-Public Use
  Company Number: 200612949US

PATIENT
  Age: 50 Year
  Sex: Female

DRUGS (4)
  1. LANTUS [Suspect]
     Indication: DIABETES MELLITUS NON-INSULIN-DEPENDENT
     Dosage: 14 U QD
     Dates: start: 20060316
  2. LISINOPRIL [Concomitant]
  3. GLUCOTROL [Concomitant]
  4. METFORMIN HCL [Concomitant]

REACTIONS (2)
  - HYPERGLYCAEMIA [None]
  - OEDEMA PERIPHERAL [None]
